FAERS Safety Report 5689064-5 (Version None)
Quarter: 2008Q1

REPORT INFORMATION
  Report Type: 
  Country: None (occurrence: None)
  Receive Date: 20080331
  Receipt Date: 20080326
  Transmission Date: 20080703
  Serious: Yes (Hospitalization)
  Sender: FDA-Public Use
  Company Number: B0514104A

PATIENT
  Age: 22 Year
  Sex: Female

DRUGS (5)
  1. CLAMOXYL [Suspect]
     Indication: TOOTH EXTRACTION
     Route: 048
     Dates: start: 20080306, end: 20080306
  2. SOLU-MEDROL [Concomitant]
     Route: 065
     Dates: start: 20080306
  3. PERFALGAN [Concomitant]
     Route: 065
     Dates: start: 20080306
  4. ATARAX [Concomitant]
     Route: 065
     Dates: start: 20080306
  5. ROHYPNOL [Concomitant]
     Route: 065
     Dates: start: 20080306

REACTIONS (7)
  - ACUTE GENERALISED EXANTHEMATOUS PUSTULOSIS [None]
  - ERYTHEMA [None]
  - INFLAMMATION [None]
  - LYMPHOCYTE MORPHOLOGY ABNORMAL [None]
  - NEUTROPHILIA [None]
  - PYREXIA [None]
  - SKIN EXFOLIATION [None]
